FAERS Safety Report 4867689-4 (Version None)
Quarter: 2005Q4

REPORT INFORMATION
  Report Type: 
  Country: None (occurrence: None)
  Receive Date: 20051228
  Receipt Date: 20051219
  Transmission Date: 20060501
  Serious: Yes (Other)
  Sender: FDA-Public Use
  Company Number: US-JNJFOC-20051204405

PATIENT
  Sex: Male
  Weight: 90.72 kg

DRUGS (10)
  1. REMICADE [Suspect]
     Route: 042
  2. REMICADE [Suspect]
     Indication: ANKYLOSING SPONDYLITIS
     Dosage: THERAPY START DATE MID 2005
     Route: 042
  3. TOPAMAX [Concomitant]
     Indication: HEADACHE
  4. RESTORIL [Concomitant]
  5. ATENOLOL [Concomitant]
     Indication: BLOOD PRESSURE
  6. BIAXIN [Concomitant]
  7. METHADONE [Concomitant]
     Indication: PAIN
  8. FOLIC ACID [Concomitant]
  9. ASPIRIN [Concomitant]
  10. VALIUM [Concomitant]
     Indication: SLEEP DISORDER

REACTIONS (2)
  - ARTHRITIS [None]
  - GASTROINTESTINAL DISORDER [None]
